FAERS Safety Report 10072157 (Version 2)
Quarter: 2014Q4

REPORT INFORMATION
  Report Type: Spontaneous
  Country: MX (occurrence: MX)
  Receive Date: 20140411
  Receipt Date: 20141121
  Transmission Date: 20150528
  Serious: Yes (Other)
  Sender: FDA-Public Use
  Company Number: PHHY2014MX042707

PATIENT
  Age: 56 Year
  Sex: Male
  Weight: 66 kg

DRUGS (3)
  1. SANDIMMUNE NEORAL [Suspect]
     Active Substance: CYCLOSPORINE
     Indication: RENAL TRANSPLANT
     Dosage: 0.5 ML, (0.3ML IN THE MORNING AND 0.2 IN THE EVENING)
     Route: 048
     Dates: start: 199204, end: 201404
  2. METICORTEN [Concomitant]
     Active Substance: PREDNISONE
     Indication: RENAL TRANSPLANT
     Dosage: 0.5 DF, QD
     Route: 048
     Dates: start: 199204
  3. EVIPRESS [Concomitant]
     Indication: HYPERTENSION
     Dosage: 2 DF, QD
     Route: 048
     Dates: start: 201309

REACTIONS (6)
  - Renal failure [Unknown]
  - Hip fracture [Recovering/Resolving]
  - Renal impairment [Not Recovered/Not Resolved]
  - Anaemia [Recovered/Resolved]
  - Fall [Recovered/Resolved]
  - Weight decreased [Recovering/Resolving]

NARRATIVE: CASE EVENT DATE: 20130906
